FAERS Safety Report 9239234 (Version 1)
Quarter: 2013Q2

REPORT INFORMATION
  Report Type: Spontaneous
  Country: US (occurrence: US)
  Receive Date: 20130417
  Receipt Date: 20130417
  Transmission Date: 20140414
  Serious: Yes (Other)
  Sender: FDA-Public Use
  Company Number: US-RB-052288-13

PATIENT
  Sex: Male

DRUGS (2)
  1. SUBOXONE UNSPECIFIED [Suspect]
     Indication: DRUG DEPENDENCE
     Dosage: UNKNOWN DOSING DETAILS
     Route: 065
  2. ANTABUSE [Concomitant]
     Indication: ALCOHOLISM
     Dosage: UNKNOWN DOSING DETAILS
     Route: 065

REACTIONS (1)
  - Psychotic disorder [Not Recovered/Not Resolved]
